FAERS Safety Report 8996371 (Version 2)
Quarter: 2013Q1

REPORT INFORMATION
  Report Type: Spontaneous
  Country: US (occurrence: US)
  Receive Date: 20130104
  Receipt Date: 20130201
  Transmission Date: 20140127
  Serious: No
  Sender: FDA-Public Use
  Company Number: US-BIOGENIDEC-2012BI064696

PATIENT
  Age: 43 None
  Sex: Female

DRUGS (3)
  1. TYSABRI [Suspect]
     Indication: MULTIPLE SCLEROSIS
     Route: 042
     Dates: start: 20080619, end: 20091008
  2. TYSABRI [Suspect]
     Indication: MULTIPLE SCLEROSIS
     Route: 042
     Dates: start: 20120829, end: 20121123
  3. BENADRYL [Concomitant]
     Indication: PREMEDICATION
     Route: 048
     Dates: start: 201212

REACTIONS (14)
  - Musculoskeletal stiffness [Unknown]
  - Coordination abnormal [Unknown]
  - Peripheral coldness [Unknown]
  - Insomnia [Not Recovered/Not Resolved]
  - Mobility decreased [Not Recovered/Not Resolved]
  - Agraphia [Unknown]
  - Skin lesion [Not Recovered/Not Resolved]
  - Infusion related reaction [Recovered/Resolved]
  - Drug specific antibody present [Not Recovered/Not Resolved]
  - Chills [Not Recovered/Not Resolved]
  - Rash [Not Recovered/Not Resolved]
  - Dyspnoea [Unknown]
  - Hypersensitivity [Not Recovered/Not Resolved]
  - Pruritus [Not Recovered/Not Resolved]
